FAERS Safety Report 6912639-X (Version None)
Quarter: 2010Q3

REPORT INFORMATION
  Report Type: 
  Country: None (occurrence: None)
  Receive Date: 20100806
  Receipt Date: 20081119
  Transmission Date: 20110219
  Serious: No
  Sender: FDA-Public Use
  Company Number: US-PFIZER INC-2008080099

PATIENT
  Sex: Female
  Weight: 90.72 kg

DRUGS (5)
  1. DETROL LA [Suspect]
     Indication: BLADDER DISORDER
     Dates: start: 20080201
  2. GLUCOPHAGE [Concomitant]
  3. LISINOPRIL [Concomitant]
  4. TAMOXIFEN [Concomitant]
  5. NORVASC [Concomitant]

REACTIONS (1)
  - CONSTIPATION [None]
